FAERS Safety Report 10911153 (Version 1)
Quarter: 2015Q1

REPORT INFORMATION
  Report Type: Spontaneous
  Country: US (occurrence: US)
  Receive Date: 20150312
  Receipt Date: 20150312
  Transmission Date: 20150721
  Serious: No
  Sender: FDA-Public Use
  Company Number: US-009507513-1503USA005065

PATIENT
  Age: 66 Year
  Sex: Female

DRUGS (1)
  1. CLARITIN-D 12 HOUR [Suspect]
     Active Substance: LORATADINE\PSEUDOEPHEDRINE SULFATE
     Indication: SINUS CONGESTION
     Dosage: 5 MG, UNKNOWN
     Route: 048
     Dates: start: 20150305

REACTIONS (1)
  - Initial insomnia [Recovering/Resolving]

NARRATIVE: CASE EVENT DATE: 20150306
